FAERS Safety Report 7129004-5 (Version None)
Quarter: 2010Q4

REPORT INFORMATION
  Report Type: 
  Country: None (occurrence: None)
  Receive Date: 20101130
  Receipt Date: 20101122
  Transmission Date: 20110411
  Serious: Yes (Life-Threatening, Hospitalization)
  Sender: FDA-Public Use
  Company Number: TR-ROCHE-743660

PATIENT
  Age: 9 Year
  Sex: Female

DRUGS (3)
  1. ALL-TRANS-RETINOIC ACID [Suspect]
     Dosage: FOR 24 DAYS DURING THE INDUCTION PART OF THE PROTOCOL
     Route: 065
  2. ALL-TRANS-RETINOIC ACID [Suspect]
     Dosage: FIRST DOSE OF MAINTENANCE THERAPY (45 MG/M2/DAY, 15 DAYS EVERY 3 MONTHS)
     Route: 065
  3. ALL-TRANS-RETINOIC ACID [Suspect]
     Dosage: 6TH MONTH OF MAINTANENACE THERAPY
     Route: 065

REACTIONS (3)
  - CARDITIS [None]
  - PULMONARY OEDEMA [None]
  - RETINOIC ACID SYNDROME [None]
